FAERS Safety Report 4619885-9 (Version None)
Quarter: 2005Q1

REPORT INFORMATION
  Report Type: 
  Country: None (occurrence: None)
  Receive Date: 20050328
  Receipt Date: 20050204
  Transmission Date: 20050727
  Serious: Yes (Other)
  Sender: FDA-Public Use
  Company Number: JP-SOLVAY-00305000403

PATIENT
  Age: 22142 Day
  Sex: Male
  Weight: 46 kg

DRUGS (25)
  1. SYMMETREL [Concomitant]
     Indication: ILL-DEFINED DISORDER
     Dosage: DAILY DOSE: 50 MILLIGRAM(S)
     Route: 048
  2. DEPROMEL 25 [Suspect]
     Indication: DEPRESSION
     Dosage: DAILY DOSE: 25 MILLIGRAM(S)
     Route: 048
     Dates: start: 20050124, end: 20050126
  3. DEPROMEL 25 [Suspect]
     Dosage: DAILY DOSE: 50 MILLIGRAM(S)
     Route: 048
     Dates: start: 20050127, end: 20050130
  4. DEPROMEL 25 [Suspect]
     Dosage: DAILY DOSE: 75 MILLIGRAM(S)
     Route: 048
     Dates: start: 20050131, end: 20050203
  5. DOGMATYL [Concomitant]
     Indication: DEPRESSION
     Dosage: DAILY DOSE: 1 DOSAGE FORM
     Route: 030
     Dates: start: 20050125, end: 20050125
  6. DOGMATYL [Concomitant]
     Dosage: DAILY DOSE: 150 MILLIGRAM(S)
     Route: 048
     Dates: start: 20050201
  7. LULLAN [Concomitant]
     Indication: ILL-DEFINED DISORDER
     Dosage: DAILY DOSE: 12 MILLIGRAM(S)
     Route: 048
     Dates: start: 20050112, end: 20050126
  8. LULLAN [Concomitant]
     Dosage: DAILY DOSE: 4 MILLIGRAM(S)
     Route: 048
     Dates: start: 20050127
  9. THYRADIN [Concomitant]
     Indication: HYPOTHYROIDISM
     Dosage: DAILY DOSE: 125 MICROGRAM(S)
     Route: 048
     Dates: start: 20050105
  10. AMAZOLON [Concomitant]
     Indication: ILL-DEFINED DISORDER
     Dosage: DAILY DOSE: 150 MILLIGRAM(S)
     Route: 048
     Dates: start: 20041216, end: 20050111
  11. AMAZOLON [Concomitant]
     Dosage: DAILY DOSE: 100 MILLIGRAM(S)
     Route: 048
     Dates: start: 20050112, end: 20050126
  12. AMAZOLON [Concomitant]
     Dosage: DAILY DOSE: 50 MILLIGRAM(S)
     Route: 048
     Dates: start: 20050127, end: 20050202
  13. AMAZOLON [Concomitant]
     Dosage: DAILY DOSE: 100 MILLIGRAM(S)
     Route: 048
     Dates: start: 20050203
  14. ANAFRANIL [Concomitant]
     Indication: DEPRESSION
     Dosage: DAILY DOSE: 1 DOSAGE FORM
     Route: 042
     Dates: start: 20050125, end: 20050125
  15. THEO-DUR [Concomitant]
     Indication: ILL-DEFINED DISORDER
     Dosage: DAILY DOSE: 100 MILLIGRAM(S)
     Route: 048
     Dates: start: 20050105, end: 20050126
  16. THEO-DUR [Concomitant]
     Dosage: DAILY DOSE: 100 MILLIGRAM(S)
     Route: 048
     Dates: start: 20050127, end: 20050206
  17. THEO-DUR [Concomitant]
     Dosage: DAILY DOSE: 50 MILLIGRAM(S)
     Route: 048
     Dates: start: 20050207, end: 20050209
  18. KAITRON-T [Concomitant]
     Indication: ILL-DEFINED DISORDER
     Dosage: DAILY DOSE: 30 MILLIGRAM(S)
     Route: 048
     Dates: start: 20041216, end: 20050126
  19. EVIPROSTAT [Concomitant]
     Indication: ILL-DEFINED DISORDER
     Dosage: DAILY DOSE: 6 DOSAGE FORM
     Route: 048
     Dates: start: 20050105, end: 20050126
  20. EPIRENAT [Concomitant]
     Indication: ILL-DEFINED DISORDER
     Dosage: DAILY DOSE: 600 MILLIGRAM(S)
     Route: 048
     Dates: start: 20041211, end: 20050111
  21. EPIRENAT [Concomitant]
     Dosage: DAILY DOSE: 400 MILLIGRAM(S)
     Route: 048
     Dates: start: 20050112, end: 20050126
  22. BENZALIN [Concomitant]
     Indication: ILL-DEFINED DISORDER
     Dosage: DAILY DOSE: 10 MILLIGRAM(S)
     Route: 048
     Dates: start: 20041216, end: 20050126
  23. LANDSEN [Concomitant]
     Indication: ILL-DEFINED DISORDER
     Dosage: DAILY DOSE: .5 MILLIGRAM(S)
     Route: 048
     Dates: start: 20041216, end: 20050126
  24. HARNAL [Concomitant]
     Indication: ILL-DEFINED DISORDER
     Dosage: DAILY DOSE: .2 MILLIGRAM(S)
     Route: 048
     Dates: start: 20050105, end: 20050126
  25. MAGNESIUM OXIDE [Concomitant]
     Indication: ILL-DEFINED DISORDER
     Dosage: DAILY DOSE: 2 GRAM(S)
     Route: 048
     Dates: start: 20041216, end: 20050126

REACTIONS (5)
  - ANAEMIA [None]
  - BLOOD CREATININE DECREASED [None]
  - BLOOD UREA DECREASED [None]
  - HYPONATRAEMIA [None]
  - TREATMENT NONCOMPLIANCE [None]
